FAERS Safety Report 6135587-4 (Version None)
Quarter: 2009Q1

REPORT INFORMATION
  Report Type: 
  Country: None (occurrence: None)
  Receive Date: 20090327
  Receipt Date: 20090324
  Transmission Date: 20090719
  Serious: Yes (Disabling)
  Sender: FDA-Public Use
  Company Number: US-BAYER-200911924NA

PATIENT
  Age: 70 Year
  Sex: Male

DRUGS (2)
  1. CIPROFLOXACIN [Suspect]
     Indication: LUNG INFECTION
     Dates: start: 20050401
  2. CIPROFLOXACIN [Suspect]
     Dates: start: 20050506

REACTIONS (4)
  - ABASIA [None]
  - LUNG INFECTION [None]
  - PAIN IN EXTREMITY [None]
  - TENDON RUPTURE [None]
